FAERS Safety Report 7559438-6 (Version None)
Quarter: 2011Q2

REPORT INFORMATION
  Report Type: 
  Country: None (occurrence: None)
  Receive Date: 20110621
  Receipt Date: 20110615
  Transmission Date: 20111010
  Serious: Yes (Hospitalization)
  Sender: FDA-Public Use
  Company Number: DE-BRISTOL-MYERS SQUIBB COMPANY-15508575

PATIENT
  Age: 70 Year
  Sex: Male
  Weight: 103 kg

DRUGS (7)
  1. METOPROLOL TARTRATE [Suspect]
     Indication: HYPERTENSION
     Dosage: 1DF= 50 UNIT NOT SPECIFIED
     Route: 048
     Dates: start: 20090101
  2. CLOPIDOGREL BISULFATE [Suspect]
     Indication: PLATELET AGGREGATION
     Route: 048
     Dates: start: 20090101
  3. METFORMIN HCL [Suspect]
     Indication: DIABETES MELLITUS
     Dosage: 1DF= 2 X 1000 (UNIT NOT SPECIFIED)
     Route: 048
     Dates: start: 20090101
  4. GABAPENTIN [Concomitant]
     Dosage: 1DF= 3 X 1 UNIT NOT SPECIFIED.
     Route: 048
     Dates: start: 20090101
  5. BACLOFEN [Suspect]
     Indication: MUSCLE SPASTICITY
     Dosage: 1DF= 10 (UNIT NOT SPECIFIED) 1/2 THRICE PER DAY
     Route: 048
     Dates: start: 20090101
  6. RAMIPRIL [Concomitant]
     Indication: HYPERTENSION
     Route: 048
     Dates: start: 20090101
  7. CITALOPRAM HYDROBROMIDE [Suspect]
     Indication: DEPRESSION
     Dosage: 1DF= 40 UNIT NOT SPECIFIED
     Route: 048
     Dates: start: 20090101

REACTIONS (1)
  - GASTRIC ULCER [None]
